FAERS Safety Report 8275790 (Version 2)
Quarter: 2013Q1

REPORT INFORMATION
  Report Type: Spontaneous
  Country: JP (occurrence: JP)
  Receive Date: 20111206
  Receipt Date: 20130128
  Transmission Date: 20140127
  Serious: Yes (Other)
  Sender: FDA-Public Use
  Company Number: JP-BIOGENIDEC-2011BI045751

PATIENT
  Age: 50 Year
  Sex: Female

DRUGS (5)
  1. AVONEX [Suspect]
     Indication: RELAPSING-REMITTING MULTIPLE SCLEROSIS
     Route: 030
     Dates: start: 20101030, end: 20101204
  2. AVONEX [Suspect]
     Indication: RELAPSING-REMITTING MULTIPLE SCLEROSIS
     Route: 030
     Dates: start: 20110115, end: 20111126
  3. PROHEPARUM [Concomitant]
     Indication: PROPHYLAXIS
     Route: 048
     Dates: start: 20101030, end: 20111126
  4. NAIXAN [Concomitant]
     Indication: PROPHYLAXIS
     Route: 048
     Dates: start: 20101030, end: 20111126
  5. LYRICA [Concomitant]
     Indication: MULTIPLE SCLEROSIS
     Route: 048
     Dates: start: 20101030, end: 20111126

REACTIONS (1)
  - Liver disorder [Recovered/Resolved]
